FAERS Safety Report 17573209 (Version 2)
Quarter: 2020Q3

REPORT INFORMATION
  Report Type: Spontaneous
  Country: NL (occurrence: NL)
  Receive Date: 20200323
  Receipt Date: 20200910
  Transmission Date: 20201102
  Serious: Yes (Life-Threatening, Hospitalization, Other)
  Sender: FDA-Public Use
  Company Number: NL-MYLANLABS-2020M1029324

PATIENT
  Age: 63 Year
  Sex: Male

DRUGS (3)
  1. SODIUM CHLORIDE. [Concomitant]
     Active Substance: SODIUM CHLORIDE
     Indication: TACHYCARDIA
     Dosage: RESUCITATED WITH INTRAVENOUS SALINE AND INTRAVENOUS FLUID CHALLANGE
     Route: 042
  2. ACENOCOUMAROL [Suspect]
     Active Substance: ACENOCOUMAROL
     Indication: DEEP VEIN THROMBOSIS
     Dosage: UNK
     Route: 042
  3. TRANEXAMIC ACID. [Concomitant]
     Active Substance: TRANEXAMIC ACID
     Indication: DEEP VEIN THROMBOSIS
     Dosage: UNK
     Route: 042

REACTIONS (12)
  - Dyspnoea [Recovered/Resolved]
  - Abdominal pain upper [Recovered/Resolved]
  - Hypotension [Recovered/Resolved]
  - Tachycardia [Recovered/Resolved]
  - Constipation [Recovered/Resolved]
  - Hepatic haemorrhage [Recovered/Resolved]
  - Hepatic cyst ruptured [Recovered/Resolved]
  - Haemorrhagic hepatic cyst [Recovered/Resolved]
  - Hepatomegaly [Recovered/Resolved]
  - Abdominal pain [Recovered/Resolved]
  - Hypovolaemic shock [Recovered/Resolved]
  - Overdose [Recovered/Resolved]
